FAERS Safety Report 11598415 (Version 1)
Quarter: 2015Q3

REPORT INFORMATION
  Report Type: Spontaneous
  Country: US (occurrence: US)
  Receive Date: 20150916
  Receipt Date: 20150916
  Transmission Date: 20151125
  Serious: No
  Sender: FDA-Public Use
  Company Number: US-ELI_LILLY_AND_COMPANY-US200712003364

PATIENT
  Age: 65 Year
  Sex: Female

DRUGS (4)
  1. FORTEO [Suspect]
     Active Substance: TERIPARATIDE
     Indication: OSTEOPOROSIS
     Dates: start: 20071211
  2. FLORINEF ACETATE [Concomitant]
     Active Substance: FLUDROCORTISONE ACETATE
     Indication: ADRENAL INSUFFICIENCY
     Dosage: 0.1 D/F, QOD
  3. MEDROL [Concomitant]
     Active Substance: METHYLPREDNISOLONE
     Dosage: 6 MG, DAILY (1/D)
  4. MEDROL [Concomitant]
     Active Substance: METHYLPREDNISOLONE
     Indication: ADRENAL INSUFFICIENCY
     Dosage: 4 MG, DAILY (1/D)

REACTIONS (5)
  - Crying [Not Recovered/Not Resolved]
  - Injection site erythema [Recovering/Resolving]
  - Injection site swelling [Recovering/Resolving]
  - Pain in extremity [Not Recovered/Not Resolved]
  - Feeling abnormal [Not Recovered/Not Resolved]

NARRATIVE: CASE EVENT DATE: 200712
